FAERS Safety Report 7669107-X (Version None)
Quarter: 2011Q3

REPORT INFORMATION
  Report Type: 
  Country: None (occurrence: None)
  Receive Date: 20110808
  Receipt Date: 20110801
  Transmission Date: 20111222
  Serious: Yes (Death, Hospitalization)
  Sender: FDA-Public Use
  Company Number: JP-ROCHE-591540

PATIENT
  Sex: Female
  Weight: 43 kg

DRUGS (4)
  1. TOCILIZUMAB [Suspect]
     Indication: RHEUMATOID ARTHRITIS
     Route: 041
     Dates: start: 20080912, end: 20080912
  2. PREDNISOLONE [Concomitant]
     Route: 048
     Dates: start: 20080630
  3. TAGAMET [Concomitant]
     Dosage: FORM: ORAL FORMULATION (NOT OTHERWISE SPECIFIED)
     Route: 048
     Dates: start: 20080630
  4. VOLTAREN [Concomitant]
     Route: 048
     Dates: start: 20080630

REACTIONS (2)
  - RHEUMATOID ARTHRITIS [None]
  - SUBARACHNOID HAEMORRHAGE [None]
